FAERS Safety Report 13272125 (Version 1)
Quarter: 2017Q1

REPORT INFORMATION
  Report Type: Spontaneous
  Country: US (occurrence: US)
  Receive Date: 20170224
  Receipt Date: 20170224
  Transmission Date: 20170428
  Serious: Yes (Other)
  Sender: FDA-Public Use
  Company Number: None

PATIENT
  Age: 64 Year
  Sex: Female
  Weight: 76.5 kg

DRUGS (11)
  1. CLONAZAPAM [Concomitant]
     Active Substance: CLONAZEPAM
  2. CLOPIDOGREL [Concomitant]
     Active Substance: CLOPIDOGREL BISULFATE
  3. AMLODIPINE [Concomitant]
     Active Substance: AMLODIPINE BESYLATE
  4. ONE-A-DAY NOS [Concomitant]
     Active Substance: MINERALS\VITAMINS
  5. LEVOTHYROXIDE [Concomitant]
  6. EQUATE COOL AND HEAT [Suspect]
     Active Substance: MENTHOL\METHYL SALICYLATE
     Indication: MUSCLE STRAIN
     Route: 061
     Dates: start: 20170109, end: 20170109
  7. METOPROLOL. [Concomitant]
     Active Substance: METOPROLOL
  8. ATORVASTIN [Concomitant]
     Active Substance: ATORVASTATIN
  9. OMEPRAZOLE. [Concomitant]
     Active Substance: OMEPRAZOLE
  10. ASPIRIN. [Concomitant]
     Active Substance: ASPIRIN
  11. ASPIRIN. [Concomitant]
     Active Substance: ASPIRIN

REACTIONS (5)
  - Pain [None]
  - Muscle strain [None]
  - Burns second degree [None]
  - Fall [None]
  - Scar [None]

NARRATIVE: CASE EVENT DATE: 20170109
